FAERS Safety Report 24841375 (Version 1)
Quarter: 2025Q1

REPORT INFORMATION
  Report Type: Spontaneous
  Country: US (occurrence: None)
  Receive Date: 20250113
  Receipt Date: 20250113
  Transmission Date: 20250409
  Serious: Yes (Other)
  Sender: FDA-CTU
  Company Number: None

PATIENT
  Age: 34 Year
  Sex: Female
  Weight: 81.65 kg

DRUGS (4)
  1. NEXPLANON [Suspect]
     Active Substance: ETONOGESTREL
     Dates: start: 20210726, end: 20241206
  2. TYLENOL [Concomitant]
     Active Substance: ACETAMINOPHEN
  3. MIDOL [Concomitant]
     Active Substance: IBUPROFEN
  4. CAFFEINE [Concomitant]
     Active Substance: CAFFEINE

REACTIONS (1)
  - Migraine [None]

NARRATIVE: CASE EVENT DATE: 20241206
